FAERS Safety Report 16683645 (Version 1)
Quarter: 2019Q3

REPORT INFORMATION
  Report Type: Spontaneous
  Country: GB (occurrence: GB)
  Receive Date: 20190808
  Receipt Date: 20190808
  Transmission Date: 20191004
  Serious: Yes (Life-Threatening, Hospitalization)
  Sender: FDA-Public Use
  Company Number: GB-ROCHE-2365781

PATIENT
  Age: 24 Year
  Sex: Male
  Weight: 73 kg

DRUGS (3)
  1. PROPRANOLOL [Concomitant]
     Active Substance: PROPRANOLOL HYDROCHLORIDE
     Indication: ESSENTIAL TREMOR
  2. TAMIFLU [Suspect]
     Active Substance: OSELTAMIVIR PHOSPHATE
     Indication: INFLUENZA
     Route: 048
     Dates: start: 20190210, end: 20190211
  3. LORATADINE. [Concomitant]
     Active Substance: LORATADINE
     Indication: DUST ALLERGY

REACTIONS (6)
  - Respiratory depression [Recovered/Resolved]
  - Dysphagia [Unknown]
  - Salivary hypersecretion [Recovered/Resolved]
  - Obstructive airways disorder [Unknown]
  - Loss of consciousness [Recovered/Resolved]
  - Respiratory arrest [Recovered/Resolved]

NARRATIVE: CASE EVENT DATE: 20190211
